FAERS Safety Report 8780450 (Version 1)
Quarter: 2012Q4

REPORT INFORMATION
  Report Type: Spontaneous
  Country: GB (occurrence: None)
  Receive Date: 20120830
  Receipt Date: 20120830
  Transmission Date: 20130627
  Serious: Yes (Death)
  Sender: FDA-Public Use
  Company Number: FK201202515

PATIENT
  Sex: Male

DRUGS (2)
  1. HEPARIN [Suspect]
     Indication: ANTICOAGULANT THERAPY
  2. WARFARIN [Suspect]

REACTIONS (11)
  - Abdominal compartment syndrome [None]
  - Abdominal wall haematoma [None]
  - Accident [None]
  - Pallor [None]
  - Tachycardia [None]
  - Metabolic acidosis [None]
  - Contusion [None]
  - Neutrophilia [None]
  - Haemoglobin decreased [None]
  - International normalised ratio increased [None]
  - Retroperitoneal haemorrhage [None]
